FAERS Safety Report 21798203 (Version 1)
Quarter: 2022Q4

REPORT INFORMATION
  Report Type: Spontaneous
  Country: US (occurrence: None)
  Receive Date: 20221229
  Receipt Date: 20221229
  Transmission Date: 20230112
  Serious: Yes (Hospitalization)
  Sender: FDA-Public Use
  Company Number: None

PATIENT
  Age: 81 Year
  Sex: Female
  Weight: 49 kg

DRUGS (1)
  1. PEMBROLIZUMAB [Suspect]
     Active Substance: PEMBROLIZUMAB
     Dates: end: 20221209

REACTIONS (10)
  - Pain in extremity [None]
  - Joint range of motion decreased [None]
  - Quality of life decreased [None]
  - Loss of personal independence in daily activities [None]
  - Asthenia [None]
  - Fatigue [None]
  - Malaise [None]
  - Failure to thrive [None]
  - Pathological fracture [None]
  - Sepsis [None]

NARRATIVE: CASE EVENT DATE: 20221223
